FAERS Safety Report 14920952 (Version 3)
Quarter: 2019Q1

REPORT INFORMATION
  Report Type: Report from Study
  Country: US (occurrence: US)
  Receive Date: 20180521
  Receipt Date: 20190312
  Transmission Date: 20190417
  Serious: Yes (Other)
  Sender: FDA-Public Use
  Company Number: US-ACTELION-A-NJ2017-164412

PATIENT
  Age: 84 Year
  Sex: Female
  Weight: 75.74 kg

DRUGS (3)
  1. LIALDA [Concomitant]
     Active Substance: MESALAMINE
  2. BALSALAZIDE [Concomitant]
     Active Substance: BALSALAZIDE
     Dosage: UNK
     Dates: start: 20190227
  3. OPSUMIT [Suspect]
     Active Substance: MACITENTAN
     Indication: PULMONARY ARTERIAL HYPERTENSION
     Dosage: 10 MG, QD
     Route: 048
     Dates: start: 20171019

REACTIONS (5)
  - Colitis ulcerative [Unknown]
  - Abdominal distension [Unknown]
  - Hernia repair [Unknown]
  - Product dose omission [Not Recovered/Not Resolved]
  - Fluid retention [Unknown]

NARRATIVE: CASE EVENT DATE: 20180320
